FAERS Safety Report 4381772-1 (Version None)
Quarter: 2004Q2

REPORT INFORMATION
  Report Type: 
  Country: None (occurrence: None)
  Receive Date: 20040603
  Receipt Date: 20030903
  Transmission Date: 20050107
  Serious: Yes (Hospitalization)
  Sender: FDA-Public Use
  Company Number: 200317504US

PATIENT
  Age: 75 Year
  Sex: Female
  Weight: 52.27 kg

DRUGS (6)
  1. LOVENOX [Suspect]
     Indication: PNEUMONIA
     Dosage: 30 MG Q12H SC
     Route: 058
     Dates: start: 20030815, end: 20030816
  2. LOVENOX [Suspect]
     Indication: PNEUMONIA
     Dosage: 100 MG BID SC
     Route: 058
     Dates: start: 20030817, end: 20030819
  3. INSULIN [Concomitant]
  4. ISOSORBIDE [Concomitant]
  5. FLUOXETINE [Concomitant]
  6. LEVOTHYROXINE (L-THYROXINE) [Concomitant]

REACTIONS (1)
  - PUNCTURE SITE HAEMORRHAGE [None]
